FAERS Safety Report 5515287-1 (Version None)
Quarter: 2007Q4

REPORT INFORMATION
  Report Type: 
  Country: None (occurrence: None)
  Receive Date: 20071113
  Receipt Date: 20071108
  Transmission Date: 20080405
  Serious: Yes (Death)
  Sender: FDA-Public Use
  Company Number: US-ROXANE LABORATORIES, INC-2007-BP-24218RO

PATIENT
  Age: 52 Year
  Sex: Male

DRUGS (1)
  1. LACTULOSE [Suspect]
     Route: 054

REACTIONS (1)
  - GASTROINTESTINAL HAEMORRHAGE [None]
